FAERS Safety Report 4685995-3 (Version None)
Quarter: 2005Q2

REPORT INFORMATION
  Report Type: 
  Country: None (occurrence: None)
  Receive Date: 20050609
  Receipt Date: 20050520
  Transmission Date: 20051028
  Serious: Yes (Death)
  Sender: FDA-Public Use
  Company Number: RU-NOVOPROD-244313

PATIENT
  Age: 13 Year
  Weight: 51 kg

DRUGS (2)
  1. NOVOSEVEN [Suspect]
     Indication: HAEMORRHAGE INTRACRANIAL
     Dosage: 47 UG/KG, TID
     Route: 042
     Dates: start: 20031217, end: 20031217
  2. CEFOTAXIME [Concomitant]
     Dates: start: 20031216, end: 20031225

REACTIONS (4)
  - DRUG INEFFECTIVE FOR UNAPPROVED INDICATION [None]
  - HAEMORRHAGE INTRACRANIAL [None]
  - HYPOCOAGULABLE STATE [None]
  - THROMBOCYTOPENIA [None]
